FAERS Safety Report 4558978-1 (Version None)
Quarter: 2005Q1

REPORT INFORMATION
  Report Type: 
  Country: None (occurrence: None)
  Receive Date: 20050121
  Receipt Date: 20050111
  Transmission Date: 20050727
  Serious: Yes (Other)
  Sender: FDA-Public Use
  Company Number: GB-ABBOTT-05P-167-0286181-00

PATIENT
  Age: 36 Year
  Sex: Male

DRUGS (4)
  1. VALPROATE SODIUM [Suspect]
     Indication: MANIA
     Route: 048
     Dates: start: 20040401
  2. VALPROATE SODIUM [Suspect]
     Dosage: DOSE DECREASED
     Dates: start: 20040101, end: 20040701
  3. OLANZAPINE [Suspect]
     Indication: MANIA
     Route: 048
     Dates: start: 20040401, end: 20040701
  4. DIAZEPAM [Concomitant]
     Indication: DRUG USE FOR UNKNOWN INDICATION
     Route: 048
     Dates: start: 20040401, end: 20040501

REACTIONS (4)
  - DISTURBANCE IN ATTENTION [None]
  - RESTLESSNESS [None]
  - SOMNOLENCE [None]
  - WEIGHT INCREASED [None]
